FAERS Safety Report 9707355 (Version 1)
Quarter: 2013Q4

REPORT INFORMATION
  Report Type: Spontaneous
  Country: US (occurrence: US)
  Receive Date: 20131125
  Receipt Date: 20131125
  Transmission Date: 20140711
  Serious: No
  Sender: FDA-Public Use
  Company Number: US-GLAXOSMITHKLINE-A1032231A

PATIENT
  Age: 66 Year
  Sex: Male
  Weight: 85.5 kg

DRUGS (6)
  1. FLOVENT [Suspect]
     Indication: COUGH
     Route: 055
     Dates: start: 2013, end: 201305
  2. ALBUTEROL [Suspect]
     Indication: COUGH
     Dates: start: 2013, end: 201305
  3. XARELTO [Suspect]
     Indication: ATRIAL FIBRILLATION
     Dosage: 20MGS PER DAY
     Route: 048
     Dates: start: 20130326
  4. SYNTHROID [Concomitant]
     Indication: THYROID DISORDER
     Route: 065
  5. AMIODARONE [Concomitant]
     Indication: ATRIAL FIBRILLATION
     Dosage: 200MG PER DAY
     Route: 048
     Dates: start: 20130326
  6. METOPROLOL [Concomitant]
     Indication: ATRIAL FIBRILLATION
     Dosage: 50MG PER DAY
     Route: 048
     Dates: start: 20130326

REACTIONS (5)
  - Gingival bleeding [Not Recovered/Not Resolved]
  - Gastrooesophageal reflux disease [Unknown]
  - Sensitivity of teeth [Not Recovered/Not Resolved]
  - Cough [Not Recovered/Not Resolved]
  - Drug ineffective [Unknown]
